FAERS Safety Report 7425189-1 (Version None)
Quarter: 2011Q2

REPORT INFORMATION
  Report Type: 
  Country: None (occurrence: None)
  Receive Date: 20110412
  Receipt Date: 20110328
  Transmission Date: 20111010
  Serious: Yes (Death, Other)
  Sender: FDA-Public Use
  Company Number: AUR-APL-2011-01187

PATIENT
  Age: 75 Year
  Sex: Male

DRUGS (3)
  1. LAMOTRIGINE [Suspect]
     Indication: CONVULSION
     Dosage: 100MG-DAILY
  2. LAMOTRIGINE [Suspect]
     Indication: CONVULSION
     Dosage: 25MG-DAILY
  3. LAMOTRIGINE [Suspect]
     Indication: CONVULSION
     Dosage: 50MG-DAILY

REACTIONS (19)
  - GRAND MAL CONVULSION [None]
  - PNEUMONIA STAPHYLOCOCCAL [None]
  - CONVULSION [None]
  - ROSEOLOVIRUS TEST POSITIVE [None]
  - PYREXIA [None]
  - EOSINOPHILIA [None]
  - MULTI-ORGAN FAILURE [None]
  - LEUKOCYTOSIS [None]
  - HEPATOMEGALY [None]
  - NOSOCOMIAL INFECTION [None]
  - RASH [None]
  - PANCREATITIS ACUTE [None]
  - CREPITATIONS [None]
  - HEPATIC FAILURE [None]
  - SEPTIC SHOCK [None]
  - ABDOMINAL PAIN [None]
  - CYTOLYTIC HEPATITIS [None]
  - DRUG RASH WITH EOSINOPHILIA AND SYSTEMIC SYMPTOMS [None]
  - HEPATITIS CHOLESTATIC [None]
